FAERS Safety Report 6068183-8 (Version None)
Quarter: 2009Q1

REPORT INFORMATION
  Report Type: 
  Country: None (occurrence: None)
  Receive Date: 20090206
  Receipt Date: 20090129
  Transmission Date: 20090719
  Serious: Yes (Hospitalization)
  Sender: FDA-Public Use
  Company Number: SE-BAYER-200911651GPV

PATIENT
  Age: 67 Year
  Sex: Female

DRUGS (9)
  1. CIPROFLOXACIN HCL [Suspect]
     Indication: DIARRHOEA
     Dosage: UNIT DOSE: 500 MG
     Route: 048
     Dates: start: 20090102, end: 20090114
  2. SIMVASTATIN [Concomitant]
     Indication: HYPERLIPIDAEMIA
     Dosage: UNIT DOSE: 20 MG
     Route: 048
  3. ENALAPRIL MALEATE [Concomitant]
     Indication: HYPERTENSION
     Dosage: UNIT DOSE: 2.5 MG
     Route: 048
     Dates: start: 20070101
  4. ALENAT [Concomitant]
     Indication: OSTEOPOROSIS
     Route: 048
  5. CALCHICEW D3 [Concomitant]
     Indication: OSTEOPOROSIS
     Route: 048
  6. CLAFORAN [Concomitant]
     Indication: DIARRHOEA
     Route: 042
     Dates: start: 20090116
  7. LACTULOSE [Concomitant]
     Indication: DRUG USE FOR UNKNOWN INDICATION
     Route: 065
  8. OMEPRAZOLE [Concomitant]
     Indication: DRUG USE FOR UNKNOWN INDICATION
     Route: 065
  9. DOLCONTIN [Concomitant]
     Indication: DRUG USE FOR UNKNOWN INDICATION
     Dosage: UNIT DOSE: 30 MG
     Route: 065

REACTIONS (7)
  - DIARRHOEA [None]
  - HYPOAESTHESIA [None]
  - NAIL BED BLEEDING [None]
  - OEDEMA PERIPHERAL [None]
  - PAIN IN EXTREMITY [None]
  - PARAESTHESIA [None]
  - VASCULITIS [None]
